FAERS Safety Report 8321918-3 (Version None)
Quarter: 2012Q2

REPORT INFORMATION
  Report Type: 
  Country: None (occurrence: None)
  Receive Date: 20120430
  Receipt Date: 20120424
  Transmission Date: 20120825
  Serious: Yes (Life-Threatening, Hospitalization)
  Sender: FDA-Public Use
  Company Number: NO-PFIZER INC-2012100834

PATIENT
  Age: 84 Year
  Sex: Female

DRUGS (6)
  1. LANOXIN [Concomitant]
     Indication: CARDIOVASCULAR DISORDER
     Dosage: 0.125 MG, 1X/DAY
     Route: 048
     Dates: end: 20120201
  2. ACETYLSALICYLIC ACID [Concomitant]
     Indication: CARDIOVASCULAR DISORDER
     Route: 048
  3. SIMVASTATIN [Interacting]
     Indication: BLOOD CHOLESTEROL INCREASED
     Dosage: 80 MG, 1X/DAY
     Route: 048
     Dates: start: 20110101, end: 20120201
  4. METOPROLOL [Concomitant]
     Indication: CARDIOVASCULAR DISORDER
     Dosage: CONTROLLED RELEASED TABLETS
     Route: 048
  5. AMLODIPINE BESYLATE [Suspect]
     Indication: CARDIOVASCULAR DISORDER
     Dosage: 10 MG, 1X/DAY
     Route: 048
     Dates: end: 20120201
  6. LISINOPRIL [Concomitant]
     Indication: CARDIOVASCULAR DISORDER
     Dosage: 20 MG, 1X/DAY
     Route: 048

REACTIONS (10)
  - NIGHT SWEATS [None]
  - MUSCULAR WEAKNESS [None]
  - MYOSITIS [None]
  - DRUG INTERACTION [None]
  - RENAL FAILURE ACUTE [None]
  - LISTLESS [None]
  - RHABDOMYOLYSIS [None]
  - GENERAL PHYSICAL HEALTH DETERIORATION [None]
  - METABOLIC ACIDOSIS [None]
  - LIVER INJURY [None]
